FAERS Safety Report 6619211-X (Version None)
Quarter: 2010Q1

REPORT INFORMATION
  Report Type: 
  Country: None (occurrence: None)
  Receive Date: 20100302
  Receipt Date: 20100223
  Transmission Date: 20100710
  Serious: Yes (Death, Life-Threatening, Hospitalization, Other)
  Sender: FDA-Public Use
  Company Number: TPA2009A03449

PATIENT
  Age: 64 Year
  Sex: Female

DRUGS (12)
  1. KAPIDEX [Suspect]
     Indication: GASTRITIS
     Dosage: 60 MG, PER ORAL; (WHILE HOSPITALIZED)
     Dates: start: 20091007, end: 20091001
  2. KAPIDEX [Suspect]
     Indication: GASTROOESOPHAGEAL REFLUX DISEASE
     Dosage: 60 MG, PER ORAL; (WHILE HOSPITALIZED)
     Dates: start: 20091007, end: 20091001
  3. ACYCLOVIR [Suspect]
     Indication: DISEASE RECURRENCE
     Dosage: 400 MG, 3 IN 1 D
  4. ACYCLOVIR [Suspect]
     Indication: HERPES ZOSTER
     Dosage: 400 MG, 3 IN 1 D
  5. AUGMENTIN '125' [Suspect]
     Indication: COUGH
     Dates: start: 20090901
  6. AUGMENTIN '125' [Suspect]
     Indication: OROPHARYNGEAL PAIN
     Dates: start: 20090901
  7. CEFUROXIME [Concomitant]
  8. PREDNISONE [Concomitant]
  9. DIPHENOXYLATE (DIPHENOXYLATE) [Concomitant]
  10. HYDROXYZINE [Concomitant]
  11. SIMVASTATIN [Concomitant]
  12. THYROID TAB [Concomitant]

REACTIONS (23)
  - ACTIVATED PARTIAL THROMBOPLASTIN TIME PROLONGED [None]
  - BLOOD ALBUMIN INCREASED [None]
  - BLOOD FIBRINOGEN INCREASED [None]
  - BLOOD SODIUM INCREASED [None]
  - CATHETER SITE HAEMORRHAGE [None]
  - DEHYDRATION [None]
  - DISSEMINATED INTRAVASCULAR COAGULATION [None]
  - ENTEROBACTER INFECTION [None]
  - ESCHERICHIA INFECTION [None]
  - HAEMATOCRIT DECREASED [None]
  - HAEMOGLOBIN DECREASED [None]
  - HYPOTENSION [None]
  - KLEBSIELLA INFECTION [None]
  - NEUTROPENIA [None]
  - ORAL CANDIDIASIS [None]
  - PROTHROMBIN TIME PROLONGED [None]
  - RENAL FAILURE [None]
  - SEPTIC SHOCK [None]
  - SERRATIA INFECTION [None]
  - STAPHYLOCOCCAL INFECTION [None]
  - STEVENS-JOHNSON SYNDROME [None]
  - THROMBOCYTOPENIA [None]
  - TOXIC EPIDERMAL NECROLYSIS [None]
